FAERS Safety Report 6227978-8 (Version None)
Quarter: 2009Q2

REPORT INFORMATION
  Report Type: 
  Country: None (occurrence: None)
  Receive Date: 20090611
  Receipt Date: 20090526
  Transmission Date: 20091009
  Serious: Yes (Other)
  Sender: FDA-Public Use
  Company Number: AT-GENENTECH-284066

PATIENT
  Sex: Female

DRUGS (1)
  1. AVASTIN [Suspect]
     Indication: LUNG NEOPLASM MALIGNANT
     Dosage: 7.5 MG/KG, Q3W
     Route: 065
     Dates: start: 20080201

REACTIONS (1)
  - INTERSTITIAL LUNG DISEASE [None]
